FAERS Safety Report 17013135 (Version 2)
Quarter: 2019Q4

REPORT INFORMATION
  Report Type: Report from Study
  Country: BR (occurrence: BR)
  Receive Date: 20191109
  Receipt Date: 20191118
  Transmission Date: 20200122
  Serious: Yes (Hospitalization, Other)
  Sender: FDA-Public Use
  Company Number: NVSC2019BR011466

PATIENT
  Age: 32 Year
  Sex: Female
  Weight: 62 kg

DRUGS (5)
  1. DULOXETINE HYDROCHLORIDE. [Concomitant]
     Active Substance: DULOXETINE HYDROCHLORIDE
     Indication: ANKYLOSING SPONDYLITIS
     Dosage: UNK, BID
     Route: 048
     Dates: start: 201904
  2. COSENTYX [Suspect]
     Active Substance: SECUKINUMAB
     Indication: ANKYLOSING SPONDYLITIS
     Dosage: UNK UNK, QW
     Route: 058
     Dates: start: 20190828
  3. PREGABALIN. [Concomitant]
     Active Substance: PREGABALIN
     Indication: ANKYLOSING SPONDYLITIS
     Dosage: UNK, BID
     Route: 048
     Dates: start: 201904
  4. COSENTYX [Suspect]
     Active Substance: SECUKINUMAB
     Dosage: UNK
     Route: 058
     Dates: start: 20191003, end: 20191003
  5. PREGABALIN. [Concomitant]
     Active Substance: PREGABALIN
     Dosage: UNK
     Route: 065

REACTIONS (9)
  - Haemorrhage [Recovered/Resolved]
  - Eye disorder [Recovered/Resolved]
  - Tremor [Recovered/Resolved]
  - Muscle spasms [Recovered/Resolved]
  - Tremor [Recovered/Resolved]
  - Muscle spasms [Recovered/Resolved]
  - Haematochezia [Unknown]
  - Dizziness [Unknown]
  - Diarrhoea [Not Recovered/Not Resolved]

NARRATIVE: CASE EVENT DATE: 20190828
